FAERS Safety Report 23128194 (Version 1)
Quarter: 2023Q4

REPORT INFORMATION
  Report Type: Spontaneous
  Country: ES (occurrence: ES)
  Receive Date: 20231031
  Receipt Date: 20231031
  Transmission Date: 20240109
  Serious: Yes (Hospitalization, Other)
  Sender: FDA-Public Use
  Company Number: ES-GLAXOSMITHKLINE-ES2023EME148822

PATIENT

DRUGS (1)
  1. JEMPERLI [Suspect]
     Active Substance: DOSTARLIMAB-GXLY
     Indication: Endometrial cancer
     Dosage: UNK (FIRST 4 CYCLES 500 MG/3 WEEKS AND FROM CYCLE 5 ONWARDS 1000 MG/6 WEEKS)

REACTIONS (2)
  - Stevens-Johnson syndrome [Recovering/Resolving]
  - Skin reaction [Recovering/Resolving]
